FAERS Safety Report 10134897 (Version 2)
Quarter: 2014Q2

REPORT INFORMATION
  Report Type: Report from Study
  Country: US (occurrence: US)
  Receive Date: 20140428
  Receipt Date: 20140530
  Transmission Date: 20141212
  Serious: Yes (Hospitalization)
  Sender: FDA-Public Use
  Company Number: US-JNJFOC-20140416013

PATIENT
  Sex: Female

DRUGS (4)
  1. INVOKANA [Suspect]
     Indication: TYPE 2 DIABETES MELLITUS
     Route: 048
  2. LISINOPRIL [Concomitant]
  3. GLIPIZIDE [Concomitant]
  4. METFORMIN [Concomitant]

REACTIONS (2)
  - Throat tightness [Recovered/Resolved]
  - Hypotension [Recovered/Resolved]
